FAERS Safety Report 22237002 (Version 1)
Quarter: 2023Q2

REPORT INFORMATION
  Report Type: Other
  Country: IT (occurrence: IT)
  Receive Date: 20230421
  Receipt Date: 20230421
  Transmission Date: 20230721
  Serious: Yes (Other)
  Sender: FDA-Public Use
  Company Number: IT-CELLTRION INC.-2023IT007824

PATIENT

DRUGS (22)
  1. RITUXIMAB [Suspect]
     Active Substance: RITUXIMAB
     Indication: Mantle cell lymphoma
     Dosage: FOURTH LINE OF SYSTEMIC TREATMENT, POLATUZUMAB VEDOTIN (P-BR)
     Dates: start: 202205, end: 202205
  2. RITUXIMAB [Suspect]
     Active Substance: RITUXIMAB
     Dosage: SIXTH LINE OF SYSTEMIC TREATMENT, POLATUZUMAB VEDOTIN (P-BR)
     Dates: start: 202210, end: 202211
  3. RITUXIMAB [Suspect]
     Active Substance: RITUXIMAB
     Dosage: SIXTH LINE OF SYSTEMIC TREATMENT, POLATUZUMAB VEDOTIN (P-BR) 375 MG/SQM ON DAY 1
     Route: 042
     Dates: start: 20221011, end: 20221103
  4. RITUXIMAB [Suspect]
     Active Substance: RITUXIMAB
     Dosage: FOURTH LINE OF SYSTEMIC TREATMENT, POLATUZUMAB VEDOTIN (P-BR) 375 MG/SQM ON DAY 1
     Route: 042
     Dates: start: 20220428, end: 202205
  5. RITUXIMAB [Suspect]
     Active Substance: RITUXIMAB
     Dosage: FIRST LINE OF SYSTEMIC TREATMENT, R-CHOP/R-DHAOX (RITUXIMAB BIOSIMILLAR)
     Route: 042
     Dates: start: 202104, end: 202110
  6. CYTARABINE [Suspect]
     Active Substance: CYTARABINE
     Indication: Mantle cell lymphoma
     Dosage: FIRST LINE OF SYSTEMIC TREATMENT, R-CHOP/R-DHAOX (RITUXIMAB BIOSIMILLAR)
     Route: 042
     Dates: start: 202104, end: 202110
  7. CYCLOPHOSPHAMIDE\DOXORUBICIN\PREDNISONE\VINCRISTINE [Suspect]
     Active Substance: CYCLOPHOSPHAMIDE\DOXORUBICIN\PREDNISONE\VINCRISTINE
     Indication: Mantle cell lymphoma
     Dosage: FIRST LINE OF SYSTEMIC TREATMENT, R-CHOP/R-DHAOX (RITUXIMAB BIOSIMILLAR)
     Route: 042
     Dates: start: 20210401, end: 20211001
  8. CISPLATIN [Suspect]
     Active Substance: CISPLATIN
     Indication: Mantle cell lymphoma
     Dosage: FIRST LINE OF SYSTEMIC TREATMENT, R-CHOP/R-DHAOX (RITUXIMAB BIOSIMILLAR)
     Route: 042
     Dates: start: 202104, end: 202110
  9. POLATUZUMAB VEDOTIN [Suspect]
     Active Substance: POLATUZUMAB VEDOTIN
     Indication: Mantle cell lymphoma
     Dosage: SIXTH LINE OF SYSTEMIC TREATMENT, POLATUZUMAB VEDOTIN (P-BR) 1.8 MG/KG ON DAY 2
     Route: 042
     Dates: start: 20221001, end: 20221101
  10. POLATUZUMAB VEDOTIN [Suspect]
     Active Substance: POLATUZUMAB VEDOTIN
     Dosage: FOURTH LINE OF SYSTEMIC TREATMENT, POLATUZUMAB VEDOTIN (P-BR) 1.8 MG/KG ON DAY 2
     Route: 042
     Dates: start: 20220501, end: 202205
  11. VENETOCLAX [Suspect]
     Active Substance: VENETOCLAX
     Indication: Mantle cell lymphoma
     Dosage: THIRD LINE OF SYSTEMIC TREATMENT, IBRUTINIB + VENETOCLAX AND SPLENECTOMY
     Route: 042
     Dates: start: 202203, end: 202204
  12. DIETARY SUPPLEMENT [Suspect]
     Active Substance: DIETARY SUPPLEMENT
     Indication: Mantle cell lymphoma
     Dosage: (POLYMER), FIRST LINE OF SYSTEMIC TREATMENT, R-CHOP/R-DHAOX (RITUXIMAB BIOSIMILLAR)
     Route: 042
     Dates: start: 20210401, end: 20211001
  13. PREDNISONE [Suspect]
     Active Substance: PREDNISONE
     Indication: Mantle cell lymphoma
     Dosage: (CHOP), FIRST LINE OF SYSTEMIC TREATMENT, R-CHOP/R-DHAOX (RITUXIMAB BIOSIMILLAR)
     Route: 042
     Dates: start: 20210401, end: 20211001
  14. VINCRISTINE SULFATE [Suspect]
     Active Substance: VINCRISTINE SULFATE
     Indication: Mantle cell lymphoma
     Dosage: (CHOP), FIRST LINE OF SYSTEMIC TREATMENT, R-CHOP/R-DHAOX (RITUXIMAB BIOSIMILLAR)
     Route: 042
     Dates: start: 20210401, end: 20211001
  15. DOXORUBICIN [Suspect]
     Active Substance: DOXORUBICIN
     Indication: Mantle cell lymphoma
     Dosage: (CHOP), FIRST LINE OF SYSTEMIC TREATMENT, R-CHOP/R-DHAOX (RITUXIMAB BIOSIMILLAR), DRUG SEPARATE DOSA
     Route: 042
     Dates: start: 20210401, end: 20211001
  16. IBRUTINIB [Suspect]
     Active Substance: IBRUTINIB
     Indication: Mantle cell lymphoma
     Dosage: THIRD LINE OF SYSTEMIC TREATMENT, IBRUTINIB + VENETOCLAX AND SPLENECTOMY
     Route: 042
     Dates: start: 202203, end: 202204
  17. IBRUTINIB [Suspect]
     Active Substance: IBRUTINIB
     Dosage: SECOND LINE OF SYSTEMIC TREATMENT, IBRUTINIB MONOTHERAPY
     Route: 042
     Dates: start: 20211101, end: 20220201
  18. BENDAMUSTINE HYDROCHLORIDE [Suspect]
     Active Substance: BENDAMUSTINE HYDROCHLORIDE
     Indication: Mantle cell lymphoma
     Dosage: 90 MG/M2, CYCLIC [SIXTH LINE OF SYSTEMIC TREATMENT, POLATUZUMAB VEDOTIN (P-BR) ON DAYS 1 AND 2)
     Route: 042
     Dates: start: 202210, end: 202211
  19. BENDAMUSTINE HYDROCHLORIDE [Suspect]
     Active Substance: BENDAMUSTINE HYDROCHLORIDE
     Dosage: 70 MG/M2, CYCLIC [FOURTH LINE OF SYSTEMIC TREATMENT, POLATUZUMAB VEDOTIN (P-BR) ON DAYS 2 AND 3]
     Route: 042
     Dates: start: 202205, end: 202205
  20. LINEZOLID [Concomitant]
     Active Substance: LINEZOLID
     Indication: Product used for unknown indication
     Dosage: DRUG SEPARATE DOSAGE NUMBER 1
  21. ACYCLOVIR [Concomitant]
     Active Substance: ACYCLOVIR
     Indication: Prophylaxis
     Dosage: UNK UNK, UNKNOWN FREQ. DRUG SEPARATE DOSAGE NUMBER 1
  22. BACTRIM [Concomitant]
     Active Substance: SULFAMETHOXAZOLE\TRIMETHOPRIM
     Indication: Prophylaxis
     Dosage: UNK UNK, UNKNOWN FREQ. DRUG SEPARATE DOSAGE NUMBER 1

REACTIONS (4)
  - Cytopenia [Unknown]
  - Lymphadenopathy [Unknown]
  - Off label use [Unknown]
  - Off label use [Unknown]

NARRATIVE: CASE EVENT DATE: 20220501
